FAERS Safety Report 15058240 (Version 1)
Quarter: 2018Q2

REPORT INFORMATION
  Report Type: Spontaneous
  Country: US (occurrence: US)
  Receive Date: 20180625
  Receipt Date: 20180625
  Transmission Date: 20180711
  Serious: Yes (Death, Other)
  Sender: FDA-Public Use
  Company Number: US-TEVA-2018-US-911707

PATIENT
  Sex: Female

DRUGS (1)
  1. WARFARIN [Suspect]
     Active Substance: WARFARIN
     Route: 065

REACTIONS (5)
  - Calciphylaxis [Unknown]
  - Death [Fatal]
  - International normalised ratio increased [Unknown]
  - Renal impairment [Unknown]
  - Contusion [Unknown]

NARRATIVE: CASE EVENT DATE: 201802
